FAERS Safety Report 5576347-2 (Version None)
Quarter: 2007Q4

REPORT INFORMATION
  Report Type: 
  Country: None (occurrence: None)
  Receive Date: 20071228
  Receipt Date: 20071217
  Transmission Date: 20080405
  Serious: Yes (Hospitalization)
  Sender: FDA-Public Use
  Company Number: NL-ROCHE-537772

PATIENT
  Age: 68 Year
  Sex: Female

DRUGS (3)
  1. CAPECITABINE [Suspect]
     Indication: GASTRIC CANCER
     Dosage: 3-WEEK CYCLE TREATMENT.
     Route: 048
  2. CAPECITABINE [Suspect]
     Route: 048
  3. CISPLATIN [Suspect]
     Indication: GASTRIC CANCER
     Route: 042

REACTIONS (4)
  - FEBRILE NEUTROPENIA [None]
  - MUCOSAL INFLAMMATION [None]
  - RESPIRATORY FAILURE [None]
  - SEPSIS [None]
